FAERS Safety Report 5084146-3 (Version None)
Quarter: 2006Q3

REPORT INFORMATION
  Report Type: 
  Country: None (occurrence: None)
  Receive Date: 20060816
  Receipt Date: 20060808
  Transmission Date: 20061208
  Serious: Yes (Hospitalization)
  Sender: FDA-Public Use
  Company Number: 2006-07-1204

PATIENT
  Age: 44 Year
  Sex: Male
  Weight: 125.1928 kg

DRUGS (1)
  1. PEG-INTRON [Suspect]
     Indication: HEPATITIS C
     Dosage: SUBCUTANEOUS
     Route: 058
     Dates: start: 20060604

REACTIONS (3)
  - CHOLECYSTITIS [None]
  - HEPATIC ENZYME INCREASED [None]
  - NOSOCOMIAL INFECTION [None]
